FAERS Safety Report 6790341-5 (Version None)
Quarter: 2010Q2

REPORT INFORMATION
  Report Type: 
  Country: None (occurrence: None)
  Receive Date: 20100624
  Receipt Date: 20080223
  Transmission Date: 20101027
  Serious: Yes (Other)
  Sender: FDA-Public Use
  Company Number: PFIZER INC-2007066296

PATIENT
  Sex: Female

DRUGS (6)
  1. GEODON [Suspect]
     Indication: SCHIZOPHRENIA
  2. PAXIL [Concomitant]
  3. KLONOPIN [Concomitant]
  4. FIORICET [Concomitant]
  5. ULTRAM [Concomitant]
  6. SOMA [Concomitant]

REACTIONS (1)
  - TARDIVE DYSKINESIA [None]
